FAERS Safety Report 8812832 (Version 1)
Quarter: 2012Q4

REPORT INFORMATION
  Report Type: 
  Country: US (occurrence: US)
  Receive Date: 20120927
  Receipt Date: 20120927
  Transmission Date: 20130627
  Serious: No
  Sender: FDA-Public Use
  Company Number: US-AMGEN-USASP2012043894

PATIENT
  Sex: Male

DRUGS (4)
  1. XGEVA [Suspect]
     Indication: METASTASES TO BONE
     Dosage: 120 mg, UNK
     Route: 058
  2. XGEVA [Suspect]
     Indication: PROSTATE CANCER METASTATIC
  3. VITAMIN D                          /00318501/ [Concomitant]
  4. CALCIUM [Concomitant]

REACTIONS (1)
  - Hypocalcaemia [Recovered/Resolved]
